FAERS Safety Report 23804838 (Version 2)
Quarter: 2024Q4

REPORT INFORMATION
  Report Type: Report from Study
  Country: US (occurrence: US)
  Receive Date: 20240501
  Receipt Date: 20241028
  Transmission Date: 20250115
  Serious: Yes (Other)
  Sender: JOHNSON AND JOHNSON
  Company Number: US-JNJFOC-20240476008

PATIENT
  Age: 48 Year
  Sex: Female
  Weight: 54.48 kg

DRUGS (7)
  1. SPRAVATO [Suspect]
     Active Substance: ESKETAMINE
     Indication: Depression
     Dosage: 56 MG, 2 TOTAL DOSES
     Dates: start: 20230613, end: 20230614
  2. SPRAVATO [Suspect]
     Active Substance: ESKETAMINE
     Indication: Major depression
     Dosage: 84 MG, 3 TOTAL DOSES
     Dates: start: 20230620, end: 20230628
  3. SPRAVATO [Suspect]
     Active Substance: ESKETAMINE
     Dosage: 56 MG, 6 TOTAL DOSES
     Dates: start: 20230703, end: 20231012
  4. CYMBALTA [Concomitant]
     Active Substance: DULOXETINE HYDROCHLORIDE
     Indication: Major depression
     Route: 065
     Dates: start: 202201
  5. ABILIFY [Concomitant]
     Active Substance: ARIPIPRAZOLE
     Indication: Major depression
     Route: 065
     Dates: start: 201801
  6. ADDERALL [Concomitant]
     Active Substance: AMPHETAMINE ASPARTATE\AMPHETAMINE SULFATE\DEXTROAMPHETAMINE SACCHARATE\DEXTROAMPHETAMINE SULFATE
     Indication: Attention deficit hyperactivity disorder
     Route: 065
  7. PERCOCET [Concomitant]
     Active Substance: ACETAMINOPHEN\OXYCODONE HYDROCHLORIDE
     Route: 065

REACTIONS (1)
  - Narcolepsy [Recovered/Resolved]

NARRATIVE: CASE EVENT DATE: 20231001
